FAERS Safety Report 6244403-1 (Version None)
Quarter: 2009Q2

REPORT INFORMATION
  Report Type: 
  Country: None (occurrence: None)
  Receive Date: 20090625
  Receipt Date: 20080110
  Transmission Date: 20091009
  Serious: Yes (Other)
  Sender: FDA-Public Use
  Company Number: US-ASTRAZENECA-2006UW11201

PATIENT
  Age: 53 Year
  Sex: Female

DRUGS (10)
  1. SEROQUEL [Suspect]
     Indication: ANXIETY
     Route: 048
     Dates: start: 19990101, end: 20050101
  2. SEROQUEL [Suspect]
     Indication: DEPRESSION
     Route: 048
     Dates: start: 19990101, end: 20050101
  3. SEROQUEL [Suspect]
     Route: 048
     Dates: start: 19990101, end: 20050101
  4. SEROQUEL [Suspect]
     Route: 048
     Dates: start: 19990101, end: 20050101
  5. SEROQUEL [Suspect]
     Dosage: 25-100 MG
     Route: 048
     Dates: start: 20030123
  6. SEROQUEL [Suspect]
     Dosage: 25-100 MG
     Route: 048
     Dates: start: 20030123
  7. DEPAKOTE [Concomitant]
     Dosage: 250-500 MG
     Dates: start: 20030925
  8. VALIUM [Concomitant]
     Dosage: 5 MG-15 MG
     Dates: start: 20050624
  9. LEXAPRO [Concomitant]
     Dosage: 10-20 MG
     Dates: start: 20030728
  10. PROZAC [Concomitant]
     Dosage: 10-40 MG
     Dates: start: 20031107

REACTIONS (4)
  - BLOOD CHOLESTEROL INCREASED [None]
  - BLOOD TRIGLYCERIDES INCREASED [None]
  - DIABETES MELLITUS [None]
  - POLYNEUROPATHY [None]
